FAERS Safety Report 9402480 (Version 1)
Quarter: 2013Q3

REPORT INFORMATION
  Report Type: Spontaneous
  Country: US (occurrence: None)
  Receive Date: 20130712
  Receipt Date: 20130712
  Transmission Date: 20140515
  Serious: Yes (Other)
  Sender: FDA-Public Use
  Company Number: None

PATIENT
  Age: 19 None
  Sex: Female

DRUGS (5)
  1. VALACYCLOVIR [Suspect]
     Indication: HERPES SIMPLEX
     Dosage: #30 1 DAILY PREVENT BREAKOUT 2 DAILY WITH BREAK OUT BY MOUTH
     Route: 048
     Dates: start: 19940101
  2. ZOLPIDEM TARTRATE [Concomitant]
  3. SALSALATE [Concomitant]
  4. PROMETHAZINE [Concomitant]
  5. OMEPRAZOLE [Concomitant]

REACTIONS (2)
  - Therapeutic response unexpected with drug substitution [None]
  - Product substitution issue [None]
